FAERS Safety Report 9220268 (Version 1)
Quarter: 2013Q2

REPORT INFORMATION
  Report Type: Report from Study
  Country: BE (occurrence: BE)
  Receive Date: 20130409
  Receipt Date: 20130409
  Transmission Date: 20140414
  Serious: Yes (Other)
  Sender: FDA-Public Use
  Company Number: BE-ABBOTT-13P-013-1040939-00

PATIENT
  Age: 72 Year
  Sex: Male

DRUGS (6)
  1. LUPRON DEPOT [Suspect]
     Indication: PRODUCT USED FOR UNKNOWN INDICATION
     Dates: start: 20111004
  2. DUODOPA [Suspect]
     Indication: PARKINSON^S DISEASE
     Route: 050
     Dates: start: 20071206
  3. DUODOPA [Suspect]
     Route: 050
     Dates: start: 20090309, end: 20100531
  4. DUODOPA [Suspect]
     Dosage: AM DOSE = 4.5 ML, CONTINUOUS DOSE = 3.2 ML/H DURING 16 HRS, EXTRA DOSE = 2 ML.
     Route: 050
     Dates: start: 20100531, end: 20100607
  5. DUODOPA [Suspect]
     Dosage: CONTINUOUSLY MONITORED AND ADJUSTED
     Route: 050
     Dates: start: 20100607, end: 20111025
  6. DUODOPA [Suspect]
     Dosage: AM DOSE = 4.5 ML, CONTINUOUS DOSE = 2.7 ML/H DURING 16 HRS, EXTRA DOSE = 1.4 ML
     Route: 050
     Dates: start: 20111025

REACTIONS (4)
  - Prostate cancer [Unknown]
  - Metastases to bone [Unknown]
  - Polyp [Unknown]
  - Prostatic specific antigen increased [Unknown]
